FAERS Safety Report 15471806 (Version 1)
Quarter: 2018Q4

REPORT INFORMATION
  Report Type: Spontaneous
  Country: FR (occurrence: FR)
  Receive Date: 20181008
  Receipt Date: 20181008
  Transmission Date: 20190205
  Serious: Yes (Hospitalization)
  Sender: FDA-Public Use
  Company Number: FR-ROCHE-2194832

PATIENT
  Age: 68 Year
  Sex: Male
  Weight: 90 kg

DRUGS (7)
  1. NICARDIPINE [Concomitant]
     Active Substance: NICARDIPINE
  2. ACTILYSE [Suspect]
     Active Substance: ALTEPLASE
     Indication: ISCHAEMIC STROKE
     Route: 042
     Dates: start: 20180811
  3. URAPIDIL [Concomitant]
     Active Substance: URAPIDIL
  4. FLECAINE [Concomitant]
     Active Substance: FLECAINIDE
  5. INSULINE [Concomitant]
     Active Substance: INSULIN NOS
  6. PARACETAMOL [Concomitant]
     Active Substance: ACETAMINOPHEN
  7. METOCLOPRAMIDE. [Concomitant]
     Active Substance: METOCLOPRAMIDE

REACTIONS (2)
  - Intracranial mass [Recovering/Resolving]
  - Haemorrhagic transformation stroke [Recovering/Resolving]

NARRATIVE: CASE EVENT DATE: 20180811
